FAERS Safety Report 7284982-9 (Version None)
Quarter: 2011Q1

REPORT INFORMATION
  Report Type: 
  Country: None (occurrence: None)
  Receive Date: 20110210
  Receipt Date: 20101217
  Transmission Date: 20110831
  Serious: Yes (Other)
  Sender: FDA-Public Use
  Company Number: US-BAYER-201016355NA

PATIENT
  Sex: Female

DRUGS (5)
  1. ZOLOFT [Concomitant]
     Dosage: UNK UNK, QD
     Dates: start: 20050829
  2. YASMIN [Suspect]
     Indication: PRODUCT USED FOR UNKNOWN INDICATION
     Route: 048
     Dates: start: 20050101, end: 20080601
  3. YASMIN [Suspect]
     Dosage: UNK
     Dates: start: 20050628
  4. ALPRAZOLAM [Concomitant]
     Dosage: UNK UNK, PRN
     Dates: start: 20050829
  5. YAZ [Suspect]
     Indication: PRODUCT USED FOR UNKNOWN INDICATION
     Route: 048
     Dates: start: 20050101, end: 20080601

REACTIONS (2)
  - SUPRAVENTRICULAR TACHYCARDIA [None]
  - PALPITATIONS [None]
